FAERS Safety Report 11130914 (Version 1)
Quarter: 2015Q2

REPORT INFORMATION
  Report Type: Spontaneous
  Country: US (occurrence: None)
  Receive Date: 20150521
  Receipt Date: 20150521
  Transmission Date: 20150821
  Serious: Yes (Hospitalization)
  Sender: FDA-Public Use
  Company Number: None

PATIENT
  Age: 62 Year
  Sex: Female

DRUGS (20)
  1. KETOTIFEN [Concomitant]
     Active Substance: KETOTIFEN
  2. GABAPENTIN. [Concomitant]
     Active Substance: GABAPENTIN
  3. LOSARTAN [Concomitant]
     Active Substance: LOSARTAN
  4. LEVETIRACETAM. [Concomitant]
     Active Substance: LEVETIRACETAM
  5. LASIX [Concomitant]
     Active Substance: FUROSEMIDE
  6. LIDOCAINE/PRILOCAINE [Concomitant]
  7. RENVELA [Concomitant]
     Active Substance: SEVELAMER CARBONATE
  8. OMEPRAZOLE. [Concomitant]
     Active Substance: OMEPRAZOLE
  9. TEMAZEPAM. [Concomitant]
     Active Substance: TEMAZEPAM
  10. DAILYVITE [Concomitant]
  11. LYRICA [Concomitant]
     Active Substance: PREGABALIN
  12. PROMETHAZINE [Concomitant]
     Active Substance: PROMETHAZINE\PROMETHAZINE HYDROCHLORIDE
  13. CLONIDINE. [Concomitant]
     Active Substance: CLONIDINE
  14. LORTAB [Concomitant]
     Active Substance: ACETAMINOPHEN\HYDROCODONE BITARTRATE
  15. AMLODIPINE [Concomitant]
     Active Substance: AMLODIPINE BESYLATE
  16. ZOFRAN [Concomitant]
     Active Substance: ONDANSETRON HYDROCHLORIDE
  17. COREG [Concomitant]
     Active Substance: CARVEDILOL
  18. HARVONI [Suspect]
     Active Substance: LEDIPASVIR\SOFOSBUVIR
     Indication: HEPATITIS C
     Route: 048
  19. FORMOTEROL [Concomitant]
     Active Substance: FORMOTEROL
  20. FLOVENT [Concomitant]
     Active Substance: FLUTICASONE PROPIONATE

REACTIONS (1)
  - Bacterial infection [None]

NARRATIVE: CASE EVENT DATE: 20150520
